FAERS Safety Report 9282896 (Version 4)
Quarter: 2014Q2

REPORT INFORMATION
  Report Type: Spontaneous
  Country: IT (occurrence: None)
  Receive Date: 20130503
  Receipt Date: 20140408
  Transmission Date: 20141212
  Serious: Yes (Hospitalization)
  Sender: FDA-Public Use
  Company Number: AUR-APL-2013-03589

PATIENT
  Age: 80 Year
  Sex: Male

DRUGS (6)
  1. ATENOLOL [Suspect]
     Indication: PRODUCT USED FOR UNKNOWN INDICATION
     Route: 048
     Dates: start: 20130323, end: 20130323
  2. KANRENOL (POTASSIUM CANRENOATE) [Concomitant]
  3. LASIX (FUROSEMIDE) [Concomitant]
  4. TRIATEC (PANADEINE CO) [Concomitant]
  5. VENITRIN (GLYCERYL TRINITRATE) [Concomitant]
  6. SINTROM (ACENOCOUMAROL) [Concomitant]

REACTIONS (9)
  - Tachyarrhythmia [None]
  - Fatigue [None]
  - Cardiac failure [None]
  - Oedema peripheral [None]
  - Hypotension [None]
  - Asthenia [None]
  - Bradycardia [None]
  - Palpitations [None]
  - Dyspnoea [None]
